FAERS Safety Report 10026043 (Version 2)
Quarter: 2014Q1

REPORT INFORMATION
  Report Type: Spontaneous
  Country: US (occurrence: US)
  Receive Date: 20140320
  Receipt Date: 20140320
  Transmission Date: 20141002
  Serious: Yes (Disabling)
  Sender: FDA-Public Use
  Company Number: US-GE HEALTHCARE MEDICAL DIAGNOSTICS-OSCN-PR-0702S-0081

PATIENT
  Age: 70 Year
  Sex: Male

DRUGS (8)
  1. OMNISCAN [Suspect]
     Indication: PERIPHERAL ARTERY STENOSIS
     Route: 042
     Dates: start: 20020620, end: 20020620
  2. OMNISCAN [Suspect]
     Indication: RENAL FAILURE ACUTE
     Route: 042
     Dates: start: 20020624, end: 20020624
  3. OMNISCAN [Suspect]
     Indication: PRODUCT USED FOR UNKNOWN INDICATION
     Route: 042
     Dates: start: 20060203, end: 20060203
  4. OMNISCAN [Suspect]
     Indication: MUSCULAR WEAKNESS
     Route: 042
     Dates: start: 20060207, end: 20060207
  5. OMNISCAN [Suspect]
     Indication: CEREBROVASCULAR ACCIDENT
     Route: 042
     Dates: start: 20060323, end: 20060323
  6. OMNISCAN [Suspect]
     Indication: MYOSITIS
     Route: 042
     Dates: start: 20060329, end: 20060329
  7. OMNISCAN [Suspect]
     Route: 042
     Dates: start: 20060329, end: 20060329
  8. ERYTHROPOIETIN [Concomitant]
     Dates: start: 2001, end: 2006

REACTIONS (1)
  - Nephrogenic systemic fibrosis [Not Recovered/Not Resolved]
